FAERS Safety Report 6152455-2 (Version None)
Quarter: 2009Q2

REPORT INFORMATION
  Report Type: 
  Country: None (occurrence: None)
  Receive Date: 20090413
  Receipt Date: 20090224
  Transmission Date: 20091009
  Serious: No
  Sender: FDA-Public Use
  Company Number: US-BAYER-200914303NA

PATIENT
  Sex: Female

DRUGS (2)
  1. YAZ [Suspect]
     Indication: DRUG USE FOR UNKNOWN INDICATION
     Route: 048
  2. ANXIOLYTICS [Concomitant]
     Indication: ANXIETY

REACTIONS (3)
  - HEADACHE [None]
  - HOT FLUSH [None]
  - NAUSEA [None]
